FAERS Safety Report 5476547-6 (Version None)
Quarter: 2007Q3

REPORT INFORMATION
  Report Type: 
  Country: None (occurrence: None)
  Receive Date: 20070926
  Receipt Date: 20070501
  Transmission Date: 20080115
  Serious: Yes (Other)
  Sender: FDA-Public Use
  Company Number: 2007035843

PATIENT
  Age: 53 Year
  Sex: Female
  Weight: 52.1637 kg

DRUGS (2)
  1. ZYRTEC [Suspect]
     Indication: MULTIPLE ALLERGIES
     Dosage: 10 MG (10 MG, 1 IN 1 D), ORAL
     Route: 048
     Dates: start: 19990101
  2. VALIUM [Suspect]
     Indication: TINNITUS
     Dates: start: 20070101

REACTIONS (5)
  - DRUG INTERACTION [None]
  - FATIGUE [None]
  - IRRITABLE BOWEL SYNDROME [None]
  - SKIN HYPERTROPHY [None]
  - TINNITUS [None]
